FAERS Safety Report 9554425 (Version 1)
Quarter: 2013Q3

REPORT INFORMATION
  Report Type: Report from Study
  Country: US (occurrence: US)
  Receive Date: 20130925
  Receipt Date: 20130925
  Transmission Date: 20140515
  Serious: Yes (Other)
  Sender: FDA-Public Use
  Company Number: US-TAKEDA-2013TUS000844

PATIENT
  Sex: 0

DRUGS (1)
  1. ACTOS [Suspect]

REACTIONS (1)
  - Myocardial infarction [Unknown]
